FAERS Safety Report 9685583 (Version 1)
Quarter: 2013Q4

REPORT INFORMATION
  Report Type: Spontaneous
  Country: SE (occurrence: SE)
  Receive Date: 20131113
  Receipt Date: 20131113
  Transmission Date: 20140711
  Serious: Yes (Other)
  Sender: FDA-Public Use
  Company Number: SE-MERCK-1311SWE002075

PATIENT
  Age: 62 Year
  Sex: Male

DRUGS (1)
  1. LOSARTAN POTASSIUM [Suspect]
     Indication: ESSENTIAL HYPERTENSION
     Dosage: 100 MG, QD, 4 WEEKS
     Route: 048
     Dates: start: 20130902, end: 20131002

REACTIONS (4)
  - Sleep disorder [Unknown]
  - Fatigue [Unknown]
  - Balance disorder [Unknown]
  - Headache [Unknown]
